FAERS Safety Report 6836538-7 (Version None)
Quarter: 2010Q3

REPORT INFORMATION
  Report Type: 
  Country: None (occurrence: None)
  Receive Date: 20100713
  Receipt Date: 20100701
  Transmission Date: 20110219
  Serious: Yes (Other)
  Sender: FDA-Public Use
  Company Number: US-PFIZER INC-2010083224

PATIENT
  Age: 45 Year
  Sex: Female

DRUGS (2)
  1. NEURONTIN [Suspect]
     Dosage: 600 MG, 1X/DAY
     Route: 048
     Dates: end: 20100501
  2. NEURONTIN [Suspect]
     Dosage: 250MG/5ML, UNK
     Route: 048
     Dates: start: 20100501

REACTIONS (2)
  - DIARRHOEA [None]
  - GASTRIC BYPASS [None]
